FAERS Safety Report 12649226 (Version 1)
Quarter: 2016Q3

REPORT INFORMATION
  Report Type: Spontaneous
  Country: US (occurrence: US)
  Receive Date: 20160812
  Receipt Date: 20160812
  Transmission Date: 20161109
  Serious: No
  Sender: FDA-Public Use
  Company Number: US-DEPOMED, INC.-US-2016DEP008292

PATIENT

DRUGS (3)
  1. GRALISE [Suspect]
     Active Substance: GABAPENTIN
     Dosage: 1200 UNK, UNK
     Route: 048
  2. GRALISE [Suspect]
     Active Substance: GABAPENTIN
     Indication: ARACHNOIDITIS
     Dosage: TITRATED UP TO 1800 MG
     Route: 048
     Dates: start: 2012
  3. ZIPSOR [Suspect]
     Active Substance: DICLOFENAC POTASSIUM
     Indication: ARACHNOIDITIS
     Dosage: 25 MG, PRN
     Route: 048

REACTIONS (1)
  - Off label use [Not Recovered/Not Resolved]
